FAERS Safety Report 5392110-X (Version None)
Quarter: 2007Q3

REPORT INFORMATION
  Report Type: 
  Country: None (occurrence: None)
  Receive Date: 20070717
  Receipt Date: 20070717
  Transmission Date: 20080115
  Serious: Yes (Hospitalization)
  Sender: FDA-Public Use
  Company Number: None

PATIENT
  Age: 85 Year
  Sex: Female

DRUGS (1)
  1. FENOLDOPAM MESYLATE [Suspect]
     Indication: PERIPHERAL VASCULAR DISORDER
     Dates: start: 20070508, end: 20070508

REACTIONS (7)
  - CATHETER RELATED COMPLICATION [None]
  - FEMORAL ARTERY DISSECTION [None]
  - INCORRECT DOSE ADMINISTERED [None]
  - PAIN IN EXTREMITY [None]
  - POST PROCEDURAL COMPLICATION [None]
  - PULSE ABSENT [None]
  - STENT OCCLUSION [None]
